FAERS Safety Report 9503709 (Version 2)
Quarter: 2014Q1

REPORT INFORMATION
  Report Type: Spontaneous
  Country: JP (occurrence: JP)
  Receive Date: 20130906
  Receipt Date: 20140218
  Transmission Date: 20141002
  Serious: Yes (Other)
  Sender: FDA-Public Use
  Company Number: JP-PFIZER INC-2013255569

PATIENT
  Age: 80 Year
  Sex: Female

DRUGS (5)
  1. IRINOTECAN HCL [Suspect]
     Indication: COLON CANCER
     Dosage: 150 MG/M2, 1X/DAY
     Route: 041
     Dates: start: 20130808, end: 20130808
  2. AVASTIN [Suspect]
     Indication: COLON CANCER
     Dosage: 5 MG/KG, 1X/DAY
     Route: 041
     Dates: start: 20121024, end: 20130808
  3. CALCIUM LEVOFOLINATE [Concomitant]
     Dosage: 100 MG/M2, UNK
     Route: 041
     Dates: start: 20121024, end: 20130808
  4. 5-FU [Concomitant]
     Dosage: UNK
     Route: 040
     Dates: start: 20121024, end: 20130808
  5. 5-FU [Concomitant]
     Dosage: UNK
     Route: 041
     Dates: end: 20130808

REACTIONS (1)
  - Cardiac failure [Recovered/Resolved]
